FAERS Safety Report 4307017-6 (Version None)
Quarter: 2004Q1

REPORT INFORMATION
  Report Type: 
  Country: None (occurrence: None)
  Receive Date: 20040225
  Receipt Date: 20040210
  Transmission Date: 20041129
  Serious: Yes (Hospitalization)
  Sender: FDA-Public Use
  Company Number: US_0402100620

PATIENT
  Age: 52 Year
  Sex: Female

DRUGS (2)
  1. KEFLEX [Suspect]
     Indication: BONE INFECTION
     Dates: start: 20040107, end: 20040108
  2. KEFLEX [Suspect]
     Indication: TOOTHACHE
     Dates: start: 20040107, end: 20040108

REACTIONS (6)
  - ABDOMINAL PAIN UPPER [None]
  - DIARRHOEA [None]
  - HEPATOMEGALY [None]
  - LIVER DISORDER [None]
  - NAUSEA [None]
  - PYREXIA [None]
